FAERS Safety Report 4930566-4 (Version None)
Quarter: 2006Q1

REPORT INFORMATION
  Report Type: 
  Country: None (occurrence: None)
  Receive Date: 20060302
  Receipt Date: 20060217
  Transmission Date: 20060701
  Serious: Yes (Hospitalization)
  Sender: FDA-Public Use
  Company Number: ES-MERCK-0602ESP00053

PATIENT
  Age: 52 Year
  Sex: Female

DRUGS (3)
  1. SINGULAIR [Suspect]
     Indication: ASTHMA
     Route: 065
  2. CORTICOSTEROIDS (UNSPECIFIED) [Concomitant]
     Indication: ASTHMA
     Route: 065
  3. [THERAPY UNSPECIFIED] [Concomitant]
     Indication: ASTHMA
     Route: 065

REACTIONS (1)
  - ALLERGIC GRANULOMATOUS ANGIITIS [None]
